FAERS Safety Report 5355839-5 (Version None)
Quarter: 2007Q2

REPORT INFORMATION
  Report Type: 
  Country: None (occurrence: None)
  Receive Date: 20070613
  Receipt Date: 20070601
  Transmission Date: 20071010
  Serious: Yes (Other)
  Sender: FDA-Public Use
  Company Number: US-KINGPHARMUSA00001-K200700559

PATIENT

DRUGS (1)
  1. EPIPEN [Suspect]
     Dosage: .3 MG, UNK
     Dates: start: 20070401, end: 20070401

REACTIONS (11)
  - ACCIDENTAL EXPOSURE [None]
  - HEART RATE INCREASED [None]
  - INJECTION SITE ANAESTHESIA [None]
  - INJECTION SITE BRUISING [None]
  - INJECTION SITE COLDNESS [None]
  - INJECTION SITE HAEMORRHAGE [None]
  - INJECTION SITE IRRITATION [None]
  - INJECTION SITE PAIN [None]
  - INJECTION SITE PALLOR [None]
  - NERVE INJURY [None]
  - PAIN [None]
